FAERS Safety Report 6145669-9 (Version None)
Quarter: 2009Q2

REPORT INFORMATION
  Report Type: 
  Country: None (occurrence: None)
  Receive Date: 20090407
  Receipt Date: 20090326
  Transmission Date: 20091009
  Serious: Yes (Other)
  Sender: FDA-Public Use
  Company Number: NO-JNJFOC-20090307052

PATIENT
  Sex: Male

DRUGS (2)
  1. REMICADE [Suspect]
     Dosage: 11TH INFUSION SCHEDULED FOR 26-MAR-2009 WAS CANCELLED
     Route: 042
  2. REMICADE [Suspect]
     Indication: PSORIATIC ARTHROPATHY
     Dosage: 10 INFUSIONS
     Route: 042

REACTIONS (2)
  - GALLBLADDER DISORDER [None]
  - JAUNDICE [None]
